FAERS Safety Report 9643215 (Version 2)
Quarter: 2013Q4

REPORT INFORMATION
  Report Type: Report from Study
  Country: RU (occurrence: RU)
  Receive Date: 20131024
  Receipt Date: 20131030
  Transmission Date: 20140711
  Serious: Yes (Other)
  Sender: FDA-Public Use
  Company Number: RU-ROCHE-1293265

PATIENT
  Age: 32 Year
  Sex: Female

DRUGS (1)
  1. XENICAL [Suspect]
     Indication: PRODUCT USED FOR UNKNOWN INDICATION
     Route: 065

REACTIONS (4)
  - Dyspnoea [Not Recovered/Not Resolved]
  - Sensory disturbance [Not Recovered/Not Resolved]
  - Tachycardia [Not Recovered/Not Resolved]
  - Goitre [Not Recovered/Not Resolved]
